FAERS Safety Report 20414857 (Version 2)
Quarter: 2022Q1

REPORT INFORMATION
  Report Type: Spontaneous
  Country: NL (occurrence: NL)
  Receive Date: 20220202
  Receipt Date: 20220208
  Transmission Date: 20220424
  Serious: Yes (Disabling)
  Sender: FDA-Public Use
  Company Number: None

PATIENT
  Sex: Male
  Weight: 90 kg

DRUGS (1)
  1. INVEGA [Suspect]
     Active Substance: PALIPERIDONE
     Indication: Schizophrenia
     Dosage: 1D1T
     Route: 048
     Dates: start: 2013, end: 20210330

REACTIONS (3)
  - Tardive dyskinesia [Not Recovered/Not Resolved]
  - Respiratory dyskinesia [Not Recovered/Not Resolved]
  - Dyspnoea [Unknown]
